FAERS Safety Report 17025031 (Version 4)
Quarter: 2019Q4

REPORT INFORMATION
  Report Type: Spontaneous
  Country: JP (occurrence: JP)
  Receive Date: 20191113
  Receipt Date: 20191217
  Transmission Date: 20200122
  Serious: Yes (Hospitalization)
  Sender: FDA-Public Use
  Company Number: JP-BEH-2019109125

PATIENT
  Age: 25 Year
  Sex: Female
  Weight: 43.2 kg

DRUGS (5)
  1. HORIZON [Suspect]
     Active Substance: DIAZEPAM
     Indication: STIFF PERSON SYNDROME
     Dosage: 10 MILLIGRAM, SINGLE
     Route: 030
     Dates: start: 20191029, end: 20191030
  2. EMLA [Concomitant]
     Active Substance: LIDOCAINE\PRILOCAINE
     Indication: LOCAL ANAESTHESIA
     Dosage: 1 GRAM, SINGLE
     Route: 061
     Dates: start: 20191028, end: 20191029
  3. HIZENTRA [Suspect]
     Active Substance: HUMAN IMMUNOGLOBULIN G
     Indication: CHRONIC INFLAMMATORY DEMYELINATING POLYRADICULONEUROPATHY
     Dosage: 4 GRAM, QD
     Route: 058
     Dates: start: 20191028, end: 20191029
  4. HORIZON [Suspect]
     Active Substance: DIAZEPAM
     Dosage: 1.5A, SINGLE
     Route: 030
     Dates: start: 20191104, end: 20191104
  5. DALACIN [CLINDAMYCIN HYDROCHLORIDE] [Concomitant]
     Active Substance: CLINDAMYCIN HYDROCHLORIDE
     Dosage: 150 MILLIGRAM, QD
     Route: 048
     Dates: start: 20191115, end: 20191122

REACTIONS (5)
  - Erythema [Recovering/Resolving]
  - Tenderness [Recovering/Resolving]
  - Cellulitis [Recovering/Resolving]
  - Swelling [Recovering/Resolving]
  - Pyrexia [Recovering/Resolving]

NARRATIVE: CASE EVENT DATE: 20191104
